FAERS Safety Report 5146949-6 (Version None)
Quarter: 2006Q4

REPORT INFORMATION
  Report Type: 
  Country: None (occurrence: None)
  Receive Date: 20061109
  Receipt Date: 20061030
  Transmission Date: 20070319
  Serious: Yes (Other)
  Sender: FDA-Public Use
  Company Number: DE-ELI_LILLY_AND_COMPANY-DE200611000788

PATIENT
  Age: 36 Year
  Sex: Male

DRUGS (6)
  1. ZYPREXA [Suspect]
     Indication: BIPOLAR I DISORDER
     Dosage: 5 MG, 2/D
     Route: 048
     Dates: start: 20060823, end: 20060919
  2. TAVOR [Concomitant]
     Dosage: 0.5 MG, UNK
     Route: 048
  3. LEPONEX [Concomitant]
     Dosage: 75 MG, UNK
     Route: 048
  4. MIRTAZAPINE [Concomitant]
     Dosage: 45 MG, DAILY (1/D)
     Route: 048
  5. CARBAMAZEPINE [Concomitant]
     Dosage: 300 MG, 2/D
     Route: 048
  6. XIMOVAN [Concomitant]
     Dosage: 3.75 MG, UNK
     Route: 048

REACTIONS (3)
  - ARACHNOID CYST [None]
  - CYST [None]
  - ELECTROENCEPHALOGRAM ABNORMAL [None]
